FAERS Safety Report 8167411-2 (Version None)
Quarter: 2012Q1

REPORT INFORMATION
  Report Type: 
  Country: None (occurrence: None)
  Receive Date: 20120227
  Receipt Date: 20120220
  Transmission Date: 20120608
  Serious: Yes (Hospitalization)
  Sender: FDA-Public Use
  Company Number: US-ELI_LILLY_AND_COMPANY-US201202003274

PATIENT
  Sex: Male
  Weight: 105.22 kg

DRUGS (8)
  1. EFFIENT [Suspect]
     Indication: CORONARY ARTERY DISEASE
     Dosage: 10 MG, QD
     Dates: start: 20120113
  2. COREG [Concomitant]
     Dosage: 6.25 MG, UNKNOWN
  3. ASPIRIN [Concomitant]
     Dosage: 81 MG, UNKNOWN
  4. ALDACTONE [Concomitant]
     Dosage: 25 MG, UNKNOWN
  5. LIPITOR [Concomitant]
     Dosage: 20 MG, QD
  6. AMIODARONE HCL [Concomitant]
     Dosage: 200 MG, UNKNOWN
  7. PROZAC [Concomitant]
     Dosage: 20 MG, UNKNOWN
  8. LISINOPRIL [Concomitant]
     Dosage: 5 MG, UNKNOWN

REACTIONS (1)
  - CHEST PAIN [None]
